FAERS Safety Report 8168262-5 (Version None)
Quarter: 2012Q1

REPORT INFORMATION
  Report Type: 
  Country: None (occurrence: None)
  Receive Date: 20120227
  Receipt Date: 20120223
  Transmission Date: 20120608
  Serious: No
  Sender: FDA-Public Use
  Company Number: PHHY2012NL016097

PATIENT

DRUGS (3)
  1. FUROSEMIDE [Concomitant]
     Dosage: 40 MG, DAILY
  2. TASIGNA [Suspect]
     Indication: CHRONIC MYELOID LEUKAEMIA
     Dosage: 300 MG, BID
     Route: 048
     Dates: start: 20110701
  3. ASCAL [Concomitant]
     Dosage: 80 MG, DAILY

REACTIONS (1)
  - EYE IRRITATION [None]
